FAERS Safety Report 15945894 (Version 2)
Quarter: 2019Q2

REPORT INFORMATION
  Report Type: Spontaneous
  Country: DE (occurrence: DE)
  Receive Date: 20190211
  Receipt Date: 20190617
  Transmission Date: 20190711
  Serious: Yes (Hospitalization, Other)
  Sender: FDA-Public Use
  Company Number: DE-SA-2019SA036125

PATIENT
  Age: 66 Year
  Sex: Male
  Weight: 85 kg

DRUGS (5)
  1. CLEXANE [Concomitant]
     Active Substance: ENOXAPARIN SODIUM
     Dosage: 0.4 ML
  2. AMLODIPINE [Concomitant]
     Active Substance: AMLODIPINE BESYLATE
     Dosage: 5 MG
  3. DUPIXENT [Suspect]
     Active Substance: DUPILUMAB
     Indication: DERMATITIS ATOPIC
     Dosage: 300 MG, QOW
     Route: 058
     Dates: start: 201811, end: 20190201
  4. FERRO SANOL [Concomitant]
     Active Substance: FERROUS GLYCINE SULFATE
  5. PARACETAMOL [Concomitant]
     Active Substance: ACETAMINOPHEN
     Dosage: 500 MG

REACTIONS (30)
  - Erysipelas [Not Recovered/Not Resolved]
  - Injection site plaque [Recovering/Resolving]
  - Drug eruption [Unknown]
  - Arthralgia [Unknown]
  - Rash pustular [Unknown]
  - Constipation [Unknown]
  - Erythema [Not Recovered/Not Resolved]
  - Necrosis [Unknown]
  - Burning sensation [Recovered/Resolved]
  - Pain [Recovered/Resolved]
  - General physical health deterioration [Unknown]
  - Diarrhoea [Unknown]
  - Scab [Unknown]
  - Pyrexia [Recovered/Resolved]
  - Dermatitis [Unknown]
  - Pain in extremity [Unknown]
  - Pruritus [Recovered/Resolved]
  - Abscess [Not Recovered/Not Resolved]
  - Blister [Unknown]
  - Dermatitis contact [Unknown]
  - Decreased appetite [Unknown]
  - Body temperature increased [Unknown]
  - Headache [Unknown]
  - Eczema [Unknown]
  - Injection site erythema [Unknown]
  - Dermatitis atopic [Unknown]
  - Pityriasis [Unknown]
  - Seroma [Unknown]
  - Hypersensitivity [Unknown]
  - Weight decreased [Unknown]

NARRATIVE: CASE EVENT DATE: 20190204
